FAERS Safety Report 7550952-6 (Version None)
Quarter: 2011Q2

REPORT INFORMATION
  Report Type: 
  Country: None (occurrence: None)
  Receive Date: 20110616
  Receipt Date: 20110601
  Transmission Date: 20111010
  Serious: Yes (Other)
  Sender: FDA-Public Use
  Company Number: US-JNJFOC-20110601410

PATIENT
  Sex: Male
  Weight: 59.5 kg

DRUGS (9)
  1. XALATAN [Concomitant]
     Dosage: 1 DROP EVERY MORNING
  2. DIAMOX SR [Concomitant]
  3. CALCIUM CARBONATE [Concomitant]
  4. PREVACID [Concomitant]
     Dosage: DAILY
  5. METHOTREXATE [Concomitant]
     Route: 058
  6. MVI (MULTIVITAMINS) [Concomitant]
     Dosage: DAILY
  7. REMICADE [Suspect]
     Indication: CROHN'S DISEASE
     Dosage: 56 DOSES
     Route: 042
  8. REMICADE [Suspect]
     Route: 042
  9. FOLIC ACID [Concomitant]

REACTIONS (3)
  - DIPLOPIA [None]
  - DIZZINESS [None]
  - BLOOD CREATININE INCREASED [None]
